FAERS Safety Report 21521750 (Version 2)
Quarter: 2023Q2

REPORT INFORMATION
  Report Type: Report from Study
  Country: US (occurrence: US)
  Receive Date: 20221028
  Receipt Date: 20230417
  Transmission Date: 20230722
  Serious: No
  Sender: FDA-Public Use
  Company Number: US-ABBVIE-4148926

PATIENT
  Sex: Female

DRUGS (3)
  1. RINVOQ [Suspect]
     Active Substance: UPADACITINIB
     Indication: Rheumatoid arthritis
     Dosage: FORM STRENGTH 15 MILLIGRAM
     Route: 048
     Dates: start: 20220701
  2. RINVOQ [Suspect]
     Active Substance: UPADACITINIB
     Indication: Rheumatoid arthritis
     Route: 048
  3. UNSPECIFIED INGREDIENT [Suspect]
     Active Substance: UNSPECIFIED INGREDIENT
     Indication: Product used for unknown indication
     Route: 065

REACTIONS (14)
  - Back pain [Not Recovered/Not Resolved]
  - Pain [Unknown]
  - Joint injury [Unknown]
  - Nerve compression [Unknown]
  - Arthropathy [Not Recovered/Not Resolved]
  - Rheumatoid arthritis [Unknown]
  - Limb injury [Unknown]
  - Pain in extremity [Not Recovered/Not Resolved]
  - Myalgia [Recovering/Resolving]
  - Musculoskeletal stiffness [Unknown]
  - Finger deformity [Unknown]
  - Muscular weakness [Unknown]
  - Exostosis [Unknown]
  - Degenerative bone disease [Unknown]
